FAERS Safety Report 23688026 (Version 1)
Quarter: 2024Q1

REPORT INFORMATION
  Report Type: Spontaneous
  Country: BR (occurrence: BR)
  Receive Date: 20240329
  Receipt Date: 20240329
  Transmission Date: 20240410
  Serious: Yes (Death)
  Sender: FDA-Public Use
  Company Number: BR-JNJFOC-20240365861

PATIENT

DRUGS (4)
  1. SPRAVATO [Suspect]
     Active Substance: ESKETAMINE
     Indication: Depression
  2. SPRAVATO [Suspect]
     Active Substance: ESKETAMINE
     Indication: Pain
  3. KETAMINE [Suspect]
     Active Substance: KETAMINE
     Indication: Depression
     Route: 065
  4. KETAMINE [Suspect]
     Active Substance: KETAMINE
     Indication: Pain

REACTIONS (2)
  - Completed suicide [Fatal]
  - Death [Fatal]
